FAERS Safety Report 7352180-6 (Version None)
Quarter: 2011Q1

REPORT INFORMATION
  Report Type: 
  Country: None (occurrence: None)
  Receive Date: 20110315
  Receipt Date: 20110310
  Transmission Date: 20110831
  Serious: Yes (Hospitalization)
  Sender: FDA-Public Use
  Company Number: US-ELI_LILLY_AND_COMPANY-US201101001013

PATIENT
  Age: 15 Year
  Sex: Male

DRUGS (2)
  1. HUMALOG [Suspect]
     Indication: TYPE 1 DIABETES MELLITUS
     Route: 058
     Dates: start: 20080101
  2. HUMALOG [Suspect]
     Dosage: 20 U, UNK
     Route: 058
     Dates: start: 20080101

REACTIONS (4)
  - DIABETIC KETOACIDOSIS [None]
  - VOMITING [None]
  - MALAISE [None]
  - BLOOD GLUCOSE INCREASED [None]
